FAERS Safety Report 5799970-9 (Version None)
Quarter: 2008Q3

REPORT INFORMATION
  Report Type: 
  Country: None (occurrence: None)
  Receive Date: 20080702
  Receipt Date: 20080702
  Transmission Date: 20090109
  Serious: Yes (Hospitalization)
  Sender: FDA-Public Use
  Company Number: None

PATIENT
  Sex: Male
  Weight: 73.4827 kg

DRUGS (1)
  1. DIGITEK 0.25MG AMIDE/BERTEK [Suspect]
     Indication: ATRIAL FIBRILLATION
     Dosage: ONE -HALF TABLET DAILY

REACTIONS (5)
  - ANOREXIA [None]
  - DIZZINESS [None]
  - FATIGUE [None]
  - INSOMNIA [None]
  - WEIGHT DECREASED [None]
